FAERS Safety Report 8539669-9 (Version None)
Quarter: 2012Q3

REPORT INFORMATION
  Report Type: 
  Country: None (occurrence: None)
  Receive Date: 20120726
  Receipt Date: 20110720
  Transmission Date: 20120928
  Serious: No
  Sender: FDA-Public Use
  Company Number: US-ASTRAZENECA-2009UW11453

PATIENT
  Age: 62 Year
  Sex: Female
  Weight: 81.6 kg

DRUGS (17)
  1. TUSSIONEX [Concomitant]
     Dates: start: 20070213
  2. SEROQUEL [Suspect]
     Indication: DEPRESSION
     Route: 048
     Dates: start: 20040101, end: 20070501
  3. EFFEXOR [Concomitant]
     Dates: start: 20070303
  4. ROZEREM [Concomitant]
     Dates: start: 20070504
  5. TEQUIN [Concomitant]
     Dates: start: 20050412
  6. NORTRIPTYLINE HCL [Concomitant]
     Dates: start: 20050906
  7. EFFEXOR [Concomitant]
     Dates: start: 20040101
  8. ACEBUTOLOL [Concomitant]
     Dates: start: 20060225
  9. ADVICOR [Concomitant]
     Dosage: 1000-40
     Dates: start: 20070207
  10. AMITRIPTYLINE HCL [Concomitant]
     Dates: start: 20060208
  11. ACETAMINOPHEN AND HYDROCODONE BITARTRATE [Concomitant]
     Dosage: 7.5-750
     Dates: start: 20070212
  12. SEROQUEL [Suspect]
     Dosage: 25 MG TO 50 MG
     Route: 048
     Dates: start: 20051021
  13. BENZONATATE [Concomitant]
     Dates: start: 20050609
  14. NIFEDIAC CC [Concomitant]
     Dates: start: 20060421
  15. THORAZINE [Concomitant]
     Dates: start: 19680101
  16. PSEUDOVENT PED [Concomitant]
     Dates: start: 20041227
  17. LUNESTA [Concomitant]
     Dates: start: 20070611

REACTIONS (4)
  - HEAD INJURY [None]
  - FALL [None]
  - OBESITY [None]
  - TYPE 2 DIABETES MELLITUS [None]
